FAERS Safety Report 4440392-0 (Version None)
Quarter: 2004Q3

REPORT INFORMATION
  Report Type: 
  Country: None (occurrence: None)
  Receive Date: 20040728
  Receipt Date: 20040308
  Transmission Date: 20050211
  Serious: No
  Sender: FDA-Public Use
  Company Number: USA040361296

PATIENT
  Sex: Female

DRUGS (3)
  1. STRATTERA [Suspect]
     Indication: ATTENTION DEFICIT/HYPERACTIVITY DISORDER
     Dosage: 40 MG/2 DAY
     Dates: start: 20040305
  2. STRATTERA [Suspect]
     Indication: DEPRESSION
     Dosage: 40 MG/2 DAY
     Dates: start: 20040305
  3. CLONAZEPAM [Concomitant]

REACTIONS (4)
  - APATHY [None]
  - DEPRESSED MOOD [None]
  - FATIGUE [None]
  - SOMNOLENCE [None]
